FAERS Safety Report 6082530-2 (Version None)
Quarter: 2009Q1

REPORT INFORMATION
  Report Type: 
  Country: None (occurrence: None)
  Receive Date: 20090204
  Receipt Date: 20080206
  Transmission Date: 20090719
  Serious: No
  Sender: FDA-Public Use
  Company Number: 265144

PATIENT
  Age: 70 Year
  Sex: Male
  Weight: 91.4 kg

DRUGS (1)
  1. NOVOLOG MIX 70/30 [Suspect]
     Indication: TYPE 1 DIABETES MELLITUS
     Dosage: 30 IU, BID
     Dates: start: 20060905

REACTIONS (1)
  - DRUG HYPERSENSITIVITY [None]
